FAERS Safety Report 21471246 (Version 2)
Quarter: 2022Q4

REPORT INFORMATION
  Report Type: Report from Study
  Country: CO (occurrence: CO)
  Receive Date: 20221018
  Receipt Date: 20221117
  Transmission Date: 20230113
  Serious: Yes (Hospitalization, Other)
  Sender: FDA-Public Use
  Company Number: CO-ASTELLAS-2020US007956

PATIENT
  Age: 58 Year
  Sex: Female
  Weight: 55 kg

DRUGS (5)
  1. TACROLIMUS [Suspect]
     Active Substance: TACROLIMUS
     Indication: Liver transplant
     Dosage: 4MG IN THE MORNING AND 3MG AT NIGHT (ALSO REPORTED 4MG IN THE MORNING AND 3MG IN THE AFTERNOON)
     Route: 048
     Dates: start: 20190802
  2. TACROLIMUS [Suspect]
     Active Substance: TACROLIMUS
     Indication: Liver transplant
     Dosage: 8 MG, ONCE DAILY (THREE 1 MG CAPSULES AND ONE 5 MG CAPSULE )
     Route: 048
     Dates: start: 20200130
  3. MYCOPHENOLIC ACID [Concomitant]
     Active Substance: MYCOPHENOLIC ACID
     Indication: Liver transplant
     Route: 048
     Dates: start: 20190802
  4. PREDNISOLONE [Concomitant]
     Active Substance: PREDNISOLONE
     Indication: Product used for unknown indication
     Route: 048
     Dates: start: 20190802
  5. OMEPRAZOLE [Concomitant]
     Active Substance: OMEPRAZOLE
     Indication: Gastric disorder
     Route: 048
     Dates: start: 20190802

REACTIONS (3)
  - Complications of transplanted liver [Not Recovered/Not Resolved]
  - COVID-19 [Recovered/Resolved]
  - Biliary obstruction [Unknown]

NARRATIVE: CASE EVENT DATE: 20220624
